FAERS Safety Report 6182784-8 (Version None)
Quarter: 2009Q2

REPORT INFORMATION
  Report Type: 
  Country: None (occurrence: None)
  Receive Date: 20090507
  Receipt Date: 20090506
  Transmission Date: 20091009
  Serious: Yes (Other)
  Sender: FDA-Public Use
  Company Number: US-ALLERGAN-0906191US

PATIENT
  Sex: Female

DRUGS (2)
  1. RESTASIS [Suspect]
     Indication: DRY EYE
     Dosage: UNK, BID
     Route: 047
  2. RESTASIS [Suspect]
     Dosage: UNK, BID
     Route: 047

REACTIONS (6)
  - EYE INFECTION [None]
  - EYE PAIN [None]
  - HEADACHE [None]
  - INJURY CORNEAL [None]
  - SUPERFICIAL INJURY OF EYE [None]
  - ULCERATIVE KERATITIS [None]
